FAERS Safety Report 10004081 (Version 4)
Quarter: 2014Q2

REPORT INFORMATION
  Report Type: Spontaneous
  Country: GB (occurrence: GB)
  Receive Date: 20140312
  Receipt Date: 20140506
  Transmission Date: 20141212
  Serious: Yes (Hospitalization)
  Sender: FDA-Public Use
  Company Number: PHFR2014GB002054

PATIENT
  Age: 62 Year
  Sex: Female

DRUGS (9)
  1. FEMARA [Suspect]
     Dosage: UNK UKN, UNK
  2. FEMARA [Suspect]
     Dosage: 1 DAILY
     Route: 048
  3. LORAZEPAM [Concomitant]
     Dosage: UNK UKN, UNK
  4. METFORMIN [Concomitant]
     Dosage: UNK UKN, UNK
     Route: 048
  5. SERTRALINE [Concomitant]
     Dosage: UNK UKN, UNK
  6. LEVOTHYROXINE [Concomitant]
     Dosage: UNK UKN, UNK
  7. ALENDRONIC ACID [Concomitant]
     Dosage: UNK UKN, UNK
  8. LANSOPRAZOLE [Concomitant]
     Dosage: UNK UKN, UNK
  9. ADCAL D3 [Concomitant]
     Dosage: UNK UKN, UNK

REACTIONS (4)
  - Ocular hyperaemia [Not Recovered/Not Resolved]
  - Eye pain [Not Recovered/Not Resolved]
  - Dry eye [Not Recovered/Not Resolved]
  - Chest discomfort [Not Recovered/Not Resolved]
